FAERS Safety Report 7350920-3 (Version None)
Quarter: 2011Q1

REPORT INFORMATION
  Report Type: 
  Country: None (occurrence: None)
  Receive Date: 20110314
  Receipt Date: 20110304
  Transmission Date: 20110831
  Serious: Yes (Hospitalization)
  Sender: FDA-Public Use
  Company Number: JP-JNJFOC-20110303732

PATIENT
  Age: 65 Year
  Sex: Female

DRUGS (9)
  1. DAUNORUBICIN HCL [Concomitant]
     Indication: HAEMATOPOIETIC NEOPLASM
     Route: 042
  2. ITRIZOLE [Suspect]
     Indication: PROPHYLAXIS
     Route: 048
  3. ITRACONAZOLE [Suspect]
     Indication: PROPHYLAXIS
     Route: 065
  4. ONCOVIN [Suspect]
     Indication: HAEMATOPOIETIC NEOPLASM
     Route: 042
  5. ELSPAR [Concomitant]
     Indication: HAEMATOPOIETIC NEOPLASM
     Route: 042
  6. ONCOVIN [Suspect]
     Route: 042
  7. ORGARAN [Concomitant]
     Indication: PROPHYLAXIS
     Route: 042
  8. ENDOXAN [Concomitant]
     Indication: HAEMATOPOIETIC NEOPLASM
     Route: 042
  9. ONCOVIN [Suspect]
     Route: 042

REACTIONS (1)
  - ILEUS PARALYTIC [None]
